FAERS Safety Report 25741136 (Version 1)
Quarter: 2025Q3

REPORT INFORMATION
  Report Type: Spontaneous
  Country: EU (occurrence: EU)
  Receive Date: 20250829
  Receipt Date: 20250829
  Transmission Date: 20251020
  Serious: Yes (Other)
  Sender: SANDOZ
  Company Number: None

PATIENT
  Age: 64 Year
  Sex: Female

DRUGS (8)
  1. HYRIMOZ [Suspect]
     Active Substance: ADALIMUMAB-ADAZ
     Indication: Ankylosing spondylitis
     Dosage: 40 MG, Q2W, 40 MG/0.4 ML
     Route: 065
     Dates: start: 202504, end: 20250714
  2. AMLODIPINE [Concomitant]
     Active Substance: AMLODIPINE BESYLATE
     Indication: Product used for unknown indication
     Dosage: 5.000MG QD
     Route: 065
     Dates: start: 20240630
  3. ATORVASTATIN [Concomitant]
     Active Substance: ATORVASTATIN
     Indication: Product used for unknown indication
     Dosage: 40.000MG QD
     Route: 065
     Dates: start: 20250808
  4. CHOLECALCIFEROL [Concomitant]
     Active Substance: CHOLECALCIFEROL
     Indication: Product used for unknown indication
     Dosage: 25000.000[IU] INTERNATION UNIT(S) Q2W
     Route: 065
     Dates: start: 20250221
  5. NAPROXEN [Concomitant]
     Active Substance: NAPROXEN
     Indication: Product used for unknown indication
     Route: 065
     Dates: start: 20240630
  6. PANTOPRAZOLE SODIUM [Concomitant]
     Active Substance: PANTOPRAZOLE SODIUM
     Indication: Product used for unknown indication
     Dosage: 40.000MG QD,STRENGTH 40 MG
     Route: 065
     Dates: start: 20240630
  7. Triatec composto [Concomitant]
     Indication: Product used for unknown indication
     Dosage: 30 MG ,QD,1 TABLET PER DAY, STRENGTH 5 MG + 25 MG
     Route: 065
     Dates: start: 20240630
  8. XELJANZ [Concomitant]
     Active Substance: TOFACITINIB CITRATE
     Indication: Product used for unknown indication
     Dosage: 10 MG QD
     Route: 065
     Dates: start: 20250808

REACTIONS (6)
  - Drug specific antibody [Not Recovered/Not Resolved]
  - Condition aggravated [Not Recovered/Not Resolved]
  - Red blood cell sedimentation rate increased [Not Recovered/Not Resolved]
  - C-reactive protein increased [Not Recovered/Not Resolved]
  - Drug ineffective [Not Recovered/Not Resolved]
  - Product substitution issue [Not Recovered/Not Resolved]

NARRATIVE: CASE EVENT DATE: 20250401
